FAERS Safety Report 5408038-2 (Version None)
Quarter: 2007Q3

REPORT INFORMATION
  Report Type: 
  Country: None (occurrence: None)
  Receive Date: 20070808
  Receipt Date: 20070802
  Transmission Date: 20080115
  Serious: Yes (Other)
  Sender: FDA-Public Use
  Company Number: PHEH2007US06243

PATIENT
  Sex: Male

DRUGS (2)
  1. DIOVAN HCT [Suspect]
     Indication: HYPERTENSION
     Dosage: 160MG VAL/12.5MG HCT, QD
     Route: 048
     Dates: start: 20060621, end: 20060719
  2. CORTISPORIN [Concomitant]
     Indication: EAR INFECTION
     Dosage: 4 DROPS, QID

REACTIONS (12)
  - ANURIA [None]
  - BLOOD PRESSURE INADEQUATELY CONTROLLED [None]
  - DERMAL CYST [None]
  - DRUG INEFFECTIVE [None]
  - ERYTHEMA [None]
  - JOINT SWELLING [None]
  - OEDEMA PERIPHERAL [None]
  - PAIN IN EXTREMITY [None]
  - PLATELET COUNT ABNORMAL [None]
  - RASH [None]
  - URINE ANALYSIS ABNORMAL [None]
  - URINE OUTPUT DECREASED [None]
